FAERS Safety Report 7374765-3 (Version None)
Quarter: 2011Q1

REPORT INFORMATION
  Report Type: 
  Country: None (occurrence: None)
  Receive Date: 20110325
  Receipt Date: 20101019
  Transmission Date: 20110831
  Serious: No
  Sender: FDA-Public Use
  Company Number: US-MYLANLABS-2010S1019436

PATIENT
  Age: 57 Year
  Sex: Female

DRUGS (2)
  1. FENTANYL-100 [Suspect]
     Indication: PAIN
     Dosage: CHANGED Q72H
     Route: 062
     Dates: start: 20100901
  2. ANALGESICS [Concomitant]
     Indication: MIGRAINE
     Dosage: UNIDENTIFIED NASAL SPRAY
     Route: 045

REACTIONS (1)
  - MIGRAINE [None]
